FAERS Safety Report 6064047-4 (Version None)
Quarter: 2009Q1

REPORT INFORMATION
  Report Type: 
  Country: None (occurrence: None)
  Receive Date: 20090203
  Receipt Date: 20090203
  Transmission Date: 20090719
  Serious: Yes (Life-Threatening, Hospitalization)
  Sender: FDA-Public Use
  Company Number: None

PATIENT
  Age: 2 Year
  Sex: Female
  Weight: 10.6 kg

DRUGS (10)
  1. ZIDOVUDINE [Suspect]
     Indication: HIV INFECTION
     Dosage: 80 MILLIGRAMS TWICE DAILY ORALLY
     Route: 048
     Dates: start: 20081213, end: 20090110
  2. LAMIVUDINE [Suspect]
     Indication: HIV INFECTION
     Dosage: 30 MILLIGRAMS TWICE DAILY ORALLY
     Route: 048
     Dates: start: 20081212, end: 20090110
  3. COTRIMOXAZOLE [Concomitant]
  4. VITAMIN A [Concomitant]
  5. VITAMIN B1 TAB [Concomitant]
  6. VITAMIN B-12 [Concomitant]
  7. NICOTINAMIDE [Concomitant]
  8. RIBOFLAVIN TAB [Concomitant]
  9. GREEN IRON AMMONIUM CITRATE [Concomitant]
  10. KALETRA [Suspect]
     Dosage: 120 MILLIGRAMS TWICE DAILY ORALLY
     Route: 048
     Dates: start: 20081212, end: 20090110

REACTIONS (8)
  - HEPATOMEGALY [None]
  - LYMPHADENECTOMY [None]
  - MUCOSAL DISCOLOURATION [None]
  - PETECHIAE [None]
  - PNEUMONIA [None]
  - RHINITIS [None]
  - SKIN HYPERPIGMENTATION [None]
  - THROMBOCYTOPENIA [None]
